FAERS Safety Report 4267611-8 (Version None)
Quarter: 2004Q1

REPORT INFORMATION
  Report Type: 
  Country: None (occurrence: None)
  Receive Date: 20040109
  Receipt Date: 20031015
  Transmission Date: 20041129
  Serious: No
  Sender: FDA-Public Use
  Company Number: US-GLAXOSMITHKLINE-A0430470A

PATIENT
  Sex: Female

DRUGS (5)
  1. WELLBUTRIN [Suspect]
     Indication: DEPRESSION
     Dosage: 150MG PER DAY
     Route: 048
     Dates: start: 20031004
  2. TRANXENE [Concomitant]
  3. GLUCOVANCE [Concomitant]
  4. BENICAR [Concomitant]
  5. ASPIRIN [Concomitant]

REACTIONS (3)
  - HEADACHE [None]
  - PALPITATIONS [None]
  - SOMNOLENCE [None]
